FAERS Safety Report 12700409 (Version 1)
Quarter: 2016Q3

REPORT INFORMATION
  Report Type: Spontaneous
  Country: US (occurrence: US)
  Receive Date: 20160830
  Receipt Date: 20160830
  Transmission Date: 20161109
  Serious: Yes (Hospitalization)
  Sender: FDA-Public Use
  Company Number: US-SA-2016SA134392

PATIENT
  Age: 26 Year
  Sex: Female
  Weight: 117.93 kg

DRUGS (6)
  1. FABRAZYME [Suspect]
     Active Substance: AGALSIDASE BETA
     Indication: FABRY^S DISEASE
     Route: 042
     Dates: start: 20141215
  2. DIPHENHYDRAMINE HYDROCHLORIDE. [Concomitant]
     Active Substance: DIPHENHYDRAMINE HYDROCHLORIDE
     Indication: ANAPHYLACTIC REACTION
     Route: 042
     Dates: start: 20160422
  3. IBUPROFEN. [Concomitant]
     Active Substance: IBUPROFEN
     Indication: PREMEDICATION
     Route: 048
     Dates: start: 20160422
  4. NORMAL SALINE [Concomitant]
     Active Substance: SODIUM CHLORIDE
     Route: 042
     Dates: start: 20160422
  5. EPIPEN [Concomitant]
     Active Substance: EPINEPHRINE
     Indication: ANAPHYLACTIC REACTION
     Route: 030
     Dates: start: 20160422
  6. HEPARIN [Concomitant]
     Active Substance: HEPARIN SODIUM
     Indication: FLUSHING
     Dosage: 100UN/ML
     Route: 042
     Dates: start: 20160422

REACTIONS (1)
  - Hypertension [Unknown]
